FAERS Safety Report 5308133-2 (Version None)
Quarter: 2007Q2

REPORT INFORMATION
  Report Type: 
  Country: None (occurrence: None)
  Receive Date: 20070426
  Receipt Date: 20070418
  Transmission Date: 20071010
  Serious: Yes (Other)
  Sender: FDA-Public Use
  Company Number: HQWYE642901JUN06

PATIENT
  Sex: Male
  Weight: 69.46 kg

DRUGS (10)
  1. ZOSYN [Suspect]
     Indication: PERITONITIS
     Dosage: UNKNOWN
     Route: 042
     Dates: start: 20051101, end: 20051101
  2. ZOSYN [Suspect]
     Indication: ESCHERICHIA INFECTION
  3. ZOSYN [Suspect]
     Indication: BACTEROIDES INFECTION
  4. ZOSYN [Suspect]
     Indication: CLOSTRIDIAL INFECTION
  5. SUNITINIB [Suspect]
     Indication: METASTATIC RENAL CELL CARCINOMA
     Dosage: 50 MG DAILY FOR 28 DAYS
     Route: 048
     Dates: start: 20051108, end: 20051122
  6. TEMSIROLIMUS [Suspect]
     Route: 048
     Dates: start: 20051210, end: 20051212
  7. COLACE [Concomitant]
     Dosage: UNKNOWN
     Route: 048
     Dates: start: 20051108
  8. PROTONIX [Concomitant]
     Dosage: UNKNOWN
     Route: 048
     Dates: start: 20051106, end: 20051108
  9. OXYCONTIN [Concomitant]
     Dosage: UNKNOWN
     Route: 048
  10. PERCOCET [Concomitant]
     Dosage: UNKNOWN
     Route: 048
     Dates: start: 20051018

REACTIONS (2)
  - HYPERBILIRUBINAEMIA [None]
  - POST PROCEDURAL COMPLICATION [None]
